FAERS Safety Report 8887095 (Version 2)
Quarter: 2012Q4

REPORT INFORMATION
  Report Type: 
  Country: US (occurrence: US)
  Receive Date: 20121105
  Receipt Date: 20121114
  Transmission Date: 20130627
  Serious: Yes (Other)
  Sender: FDA-Public Use
  Company Number: CHPA2012US022531

PATIENT
  Age: 62 Year
  Sex: Female

DRUGS (4)
  1. VOLTAREN GEL [Suspect]
     Indication: ARTHRITIS
     Dosage: Just a little bit
     Route: 061
     Dates: start: 201210, end: 20121022
  2. NITROGLYCERIN [Concomitant]
     Indication: CHEST PAIN
  3. DIURETICS [Concomitant]
     Indication: FLUID RETENTION
  4. DRUG THERAPY NOS [Concomitant]
     Indication: ARTHRITIS

REACTIONS (6)
  - Chest pain [Recovered/Resolved]
  - Oedema [Recovered/Resolved]
  - Dizziness [Recovered/Resolved]
  - Dyspnoea [Recovered/Resolved]
  - Drug administered at inappropriate site [Unknown]
  - Wrong technique in drug usage process [Unknown]
